FAERS Safety Report 20349138 (Version 1)
Quarter: 2022Q1

REPORT INFORMATION
  Report Type: Spontaneous
  Country: US (occurrence: US)
  Receive Date: 20220119
  Receipt Date: 20220119
  Transmission Date: 20220423
  Serious: No
  Sender: FDA-Public Use
  Company Number: US-LUPIN PHARMACEUTICALS INC.-2022-00342

PATIENT
  Age: 15 Year
  Sex: Male

DRUGS (33)
  1. LORAZEPAM [Suspect]
     Active Substance: LORAZEPAM
     Indication: Malignant catatonia
     Dosage: 2 MILLIGRAM, BID (ON SECOND DAY AND FIFTH OF HOSPITAL)
     Route: 048
  2. LORAZEPAM [Suspect]
     Active Substance: LORAZEPAM
     Dosage: 2 MILLIGRAM (EVERY MORNING , ON THIRD DAY OF HOSPITAL)
     Route: 048
  3. LORAZEPAM [Suspect]
     Active Substance: LORAZEPAM
     Dosage: 4 MILLIGRAM (EVERY EVENING (ON THIRD OF HOSPITAL)
     Route: 048
  4. LORAZEPAM [Suspect]
     Active Substance: LORAZEPAM
     Dosage: 1 MILLIGRAM (EVERY MORNING (ON SIXTH DAY OF HOSPITAL))
     Route: 048
  5. LORAZEPAM [Suspect]
     Active Substance: LORAZEPAM
     Dosage: 2 MILLIGRAM (IN EVENING ON SEVENTH DAY OF HOSPITAL)
     Route: 048
  6. LORAZEPAM [Suspect]
     Active Substance: LORAZEPAM
     Dosage: 4 MILLIGRAM (IN EVENING ON 35TH DAY OF HOSPITAL)
     Route: 048
  7. LORAZEPAM [Suspect]
     Active Substance: LORAZEPAM
     Dosage: 4 MILLIGRAM, BID (AS NEEDED ON 36TH DAY OF HOSPITAL)
     Route: 048
  8. LORAZEPAM [Suspect]
     Active Substance: LORAZEPAM
     Dosage: 4 MILLIGRAM (THREE TIMES A DAY (AFTER CROSS-TITRATION WITH CLONAZEPAM) ON 39TH DAY OF HOSPITAL )
     Route: 048
  9. CLONAZEPAM [Concomitant]
     Active Substance: CLONAZEPAM
     Indication: Malignant catatonia
     Dosage: 1 MILLIGRAM(IN EVENING ON 16TH AND 37TH DAY OF HOSPITAL)
     Route: 048
  10. CLONAZEPAM [Concomitant]
     Active Substance: CLONAZEPAM
     Dosage: 2 MILLIGRAM (IN EVENING ON 18TH AND 36TH DAY OF  HOSPITAL )
     Route: 048
  11. CLONAZEPAM [Concomitant]
     Active Substance: CLONAZEPAM
     Dosage: 4 MILLIGRAM (IN EVENING ON 24TH AND 28TH HOSPITAL DAY)
     Route: 048
  12. CLONAZEPAM [Concomitant]
     Active Substance: CLONAZEPAM
     Dosage: 2 MILLIGRAM (IN MORNING ON 27TH,35TH,36TH,37TH DAY OF HOSPITAL)
     Route: 048
  13. CLONAZEPAM [Concomitant]
     Active Substance: CLONAZEPAM
     Dosage: 4 MILLIGRAM, BID (ON 29TH DAY OF HOSPITAL)
     Route: 048
  14. CLONAZEPAM [Concomitant]
     Active Substance: CLONAZEPAM
     Dosage: 4 MILLIGRAM (IN MORNING ON 34TH DAY OF HOSPITAL)
     Route: 048
  15. CLONAZEPAM [Concomitant]
     Active Substance: CLONAZEPAM
     Dosage: 6 MILLIGRAM (IN EVENING ON 34TH DAY OF HOSPITAL )
     Route: 048
  16. CLONAZEPAM [Concomitant]
     Active Substance: CLONAZEPAM
     Dosage: 1 MILLIGRAM, BID (ON 38TH DAY OF HOSPITAL)
     Route: 048
  17. CLONAZEPAM [Concomitant]
     Active Substance: CLONAZEPAM
     Dosage: 1 MILLIGRAM (IN MORNING ON 40TH DAY OF HOSPITAL)
     Route: 048
  18. CLONAZEPAM [Concomitant]
     Active Substance: CLONAZEPAM
     Dosage: UNK
  19. RISPERIDONE [Concomitant]
     Active Substance: RISPERIDONE
     Indication: Malignant catatonia
     Dosage: 0.5 MILLIGRAM (ON 1ST DAY OF HOSPITAL)
     Route: 048
  20. RISPERIDONE [Concomitant]
     Active Substance: RISPERIDONE
     Dosage: 2 MILLIGRAM (ON SECOND HOSPITAL DAY)
     Route: 048
  21. RISPERIDONE [Concomitant]
     Active Substance: RISPERIDONE
     Dosage: 2.5 MILLIGRAM (ON THIRD DAY OF HOSPITAL)
     Route: 048
  22. RISPERIDONE [Concomitant]
     Active Substance: RISPERIDONE
     Dosage: 3.5 MILLIGRAM (ON FOURTH DAY OF HOSPITAL)
     Route: 048
  23. RISPERIDONE [Concomitant]
     Active Substance: RISPERIDONE
     Dosage: 2 MILLIGRAM, BID (ON FIFTH DAY OF HOSPITAL)
     Route: 048
  24. RISPERIDONE [Concomitant]
     Active Substance: RISPERIDONE
     Dosage: 2 MILLIGRAM (IN MORNING ON 19TH DAY OF HOSPITAL)
     Route: 048
  25. RISPERIDONE [Concomitant]
     Active Substance: RISPERIDONE
     Dosage: 1 MILLIGRAM (IN EVENING ON 19TH HOSPITAL DAY
     Route: 048
  26. RISPERIDONE [Concomitant]
     Active Substance: RISPERIDONE
     Dosage: 1 MILLIGRAM (IN MORNING ON 20TH HOSPITAL DAY
     Route: 048
  27. DIPHENHYDRAMINE [Concomitant]
     Active Substance: DIPHENHYDRAMINE
     Indication: Malignant catatonia
     Dosage: 25 MILLIGRAM (ON SECOND AND THIRD HOSPITAL DAY)
     Route: 065
  28. DIPHENHYDRAMINE [Concomitant]
     Active Substance: DIPHENHYDRAMINE
     Dosage: 50 MILLIGRAM (FROM HOSPITAL DAY 9)
     Route: 065
  29. HALOPERIDOL [Concomitant]
     Active Substance: HALOPERIDOL
     Indication: Malignant catatonia
     Dosage: 1 MILLIGRAM (ON SECOND HOSPITAL DAY)
     Route: 065
  30. BENZTROPINE [Concomitant]
     Active Substance: BENZTROPINE
     Indication: Malignant catatonia
     Dosage: 1 MILLIGRAM (ON 19TH HOSPITAL DAY)
     Route: 065
  31. OLANZAPINE [Concomitant]
     Active Substance: OLANZAPINE
     Indication: Malignant catatonia
     Dosage: 10 MILLIGRAM (IN EVENING ON 20TH AND 22ND  DAY OF HOSPITAL)
     Route: 065
  32. OLANZAPINE [Concomitant]
     Active Substance: OLANZAPINE
     Dosage: 10 MILLIGRAM, BID (ON 29TH DAY OF HOSPITAL)
     Route: 065
  33. OLANZAPINE [Concomitant]
     Active Substance: OLANZAPINE
     Dosage: 5 MILLIGRAM ( IN EVENING ON 21ST DAY OF HOSPITAL)
     Route: 065

REACTIONS (1)
  - Off label use [Unknown]
